FAERS Safety Report 4939208-5 (Version None)
Quarter: 2006Q1

REPORT INFORMATION
  Report Type: 
  Country: None (occurrence: None)
  Receive Date: 20060309
  Receipt Date: 20060309
  Transmission Date: 20060701
  Serious: No
  Sender: FDA-Public Use
  Company Number: None

PATIENT
  Age: 58 Year
  Sex: Female
  Weight: 72 kg

DRUGS (1)
  1. LYRICA [Suspect]
     Indication: NEURALGIA
     Dosage: 75MG   AT BEDTIME   PO
     Route: 048
     Dates: start: 20060303, end: 20060304

REACTIONS (1)
  - STEVENS-JOHNSON SYNDROME [None]
